FAERS Safety Report 12431033 (Version 3)
Quarter: 2016Q3

REPORT INFORMATION
  Report Type: Spontaneous
  Country: AR (occurrence: AR)
  Receive Date: 20160603
  Receipt Date: 20160713
  Transmission Date: 20161109
  Serious: Yes (Death, Hospitalization, Other)
  Sender: FDA-Public Use
  Company Number: AR-ROCHE-1766609

PATIENT
  Sex: Male

DRUGS (3)
  1. CYCLOPHOSPHAMIDE. [Concomitant]
     Active Substance: CYCLOPHOSPHAMIDE
     Indication: CHRONIC LYMPHOCYTIC LEUKAEMIA
     Route: 065
     Dates: start: 201106, end: 201111
  2. FLUDARABINE [Concomitant]
     Active Substance: FLUDARABINE PHOSPHATE
     Indication: CHRONIC LYMPHOCYTIC LEUKAEMIA
     Route: 065
     Dates: start: 201106, end: 201111
  3. MABTHERA [Suspect]
     Active Substance: RITUXIMAB
     Indication: CHRONIC LYMPHOCYTIC LEUKAEMIA
     Dosage: 4 CYCLES RECEIVED AT THE MOMENT OF AE
     Route: 042
     Dates: start: 20110613, end: 201111

REACTIONS (11)
  - Viral infection [Unknown]
  - Herpes zoster [Unknown]
  - Leukopenia [Unknown]
  - Cytopenia [Not Recovered/Not Resolved]
  - Anal abscess [Unknown]
  - Allergy to immunoglobulin therapy [Unknown]
  - Lung neoplasm malignant [Fatal]
  - Rectal haemorrhage [Unknown]
  - Hypogammaglobulinaemia [Not Recovered/Not Resolved]
  - Respiratory tract infection [Unknown]
  - Aphthous ulcer [Unknown]
